FAERS Safety Report 7967815-4 (Version None)
Quarter: 2011Q4

REPORT INFORMATION
  Report Type: 
  Country: None (occurrence: None)
  Receive Date: 20111207
  Receipt Date: 20111125
  Transmission Date: 20120403
  Serious: Yes (Other)
  Sender: FDA-Public Use
  Company Number: AXC-2011-000500

PATIENT
  Age: 55 Year
  Sex: Male

DRUGS (3)
  1. URSODEOXYCHOLIC ACID (URSODEOXYCHOLIC ACID) UNKNOWN [Suspect]
     Indication: PROPHYLAXIS
     Dates: start: 20090101
  2. METHOTREXATE [Suspect]
     Indication: PROPHYLAXIS AGAINST GRAFT VERSUS HOST DISEASE
     Dates: start: 20090101
  3. TACROLIMUS [Suspect]
     Indication: PROPHYLAXIS AGAINST GRAFT VERSUS HOST DISEASE
     Dates: start: 20090101

REACTIONS (11)
  - GRAFT VERSUS HOST DISEASE IN SKIN [None]
  - WEIGHT INCREASED [None]
  - THROMBOCYTOPENIA [None]
  - GRAFT VERSUS HOST DISEASE IN LIVER [None]
  - GRAFT VERSUS HOST DISEASE IN LUNG [None]
  - REFRACTORINESS TO PLATELET TRANSFUSION [None]
  - ACUTE GRAFT VERSUS HOST DISEASE [None]
  - ABDOMINAL PAIN UPPER [None]
  - FEBRILE NEUTROPENIA [None]
  - VENOOCCLUSIVE LIVER DISEASE [None]
  - DISSEMINATED INTRAVASCULAR COAGULATION [None]
